FAERS Safety Report 5088971-4 (Version None)
Quarter: 2006Q3

REPORT INFORMATION
  Report Type: 
  Country: None (occurrence: None)
  Receive Date: 20060824
  Receipt Date: 20060824
  Transmission Date: 20061208
  Serious: No
  Sender: FDA-Public Use
  Company Number: None

PATIENT
  Age: 15 Year
  Sex: Male
  Weight: 74 kg

DRUGS (6)
  1. AMPICILLIN AND SULBACTAM [Suspect]
     Indication: LOCALISED INFECTION
     Dosage: 3 GRAMS  Q6H IV
     Route: 042
     Dates: start: 20060815, end: 20060816
  2. AMPICILLIN AND SULBACTAM [Suspect]
     Indication: NECK MASS
     Dosage: 3 GRAMS  Q6H IV
     Route: 042
     Dates: start: 20060815, end: 20060816
  3. AMPICILLIN AND SULBACTAM [Suspect]
     Indication: LOCALISED INFECTION
     Dosage: 3 GRAMS  Q6H IV
     Route: 042
     Dates: start: 20060819, end: 20060823
  4. AMPICILLIN AND SULBACTAM [Suspect]
     Indication: NECK MASS
     Dosage: 3 GRAMS  Q6H IV
     Route: 042
     Dates: start: 20060819, end: 20060823
  5. CLINDAMYCIN [Suspect]
     Indication: LOCALISED INFECTION
     Dosage: 600 MILLIGRAMS Q8H IV
     Route: 042
     Dates: start: 20060816, end: 20060823
  6. CLINDAMYCIN [Suspect]
     Indication: NECK MASS
     Dosage: 600 MILLIGRAMS Q8H IV
     Route: 042
     Dates: start: 20060816, end: 20060823

REACTIONS (4)
  - DRUG INEFFECTIVE [None]
  - RASH ERYTHEMATOUS [None]
  - RASH GENERALISED [None]
  - RASH PRURITIC [None]
